FAERS Safety Report 9585412 (Version 1)
Quarter: 2013Q4

REPORT INFORMATION
  Report Type: Spontaneous
  Country: US (occurrence: US)
  Receive Date: 20131002
  Receipt Date: 20131002
  Transmission Date: 20140711
  Serious: No
  Sender: FDA-Public Use
  Company Number: US-AMGEN-USASP2013064119

PATIENT
  Age: 22 Year
  Sex: Female

DRUGS (5)
  1. ENBREL [Suspect]
     Indication: PRODUCT USED FOR UNKNOWN INDICATION
     Dosage: 50 MG, QWK
     Route: 058
  2. LEVOTHYROXIN [Concomitant]
     Dosage: 100 MUG, UNK
  3. VITAMIN E                          /00110501/ [Concomitant]
     Dosage: 100 UNIT, UNK
  4. CALCIUM [Concomitant]
     Dosage: 500 UNK, UNK
  5. FOLIC ACID [Concomitant]
     Dosage: UNK

REACTIONS (3)
  - Blepharospasm [Unknown]
  - Malaise [Unknown]
  - Cough [Unknown]
